FAERS Safety Report 5606874-0 (Version None)
Quarter: 2008Q1

REPORT INFORMATION
  Report Type: 
  Country: None (occurrence: None)
  Receive Date: 20080129
  Receipt Date: 20080122
  Transmission Date: 20080703
  Serious: Yes (Hospitalization)
  Sender: FDA-Public Use
  Company Number: US-GENENTECH-254666

PATIENT
  Sex: Male
  Weight: 68.934 kg

DRUGS (4)
  1. BEVACIZUMAB [Suspect]
     Indication: COLORECTAL CANCER METASTATIC
     Dosage: 386 MG, Q2W
     Route: 042
     Dates: start: 20070425
  2. CETUXIMAB [Suspect]
     Indication: COLORECTAL CANCER METASTATIC
     Dosage: 490 MG, 1/WEEK
     Route: 042
     Dates: start: 20070425
  3. FLUOROURACIL [Suspect]
     Indication: COLORECTAL CANCER METASTATIC
     Dosage: 4704 MG, Q2W
     Route: 042
     Dates: start: 20070425
  4. LEUCOVORIN [Suspect]
     Indication: COLON CANCER METASTATIC
     Dosage: 784 MG, Q2W
     Route: 042
     Dates: start: 20070425

REACTIONS (1)
  - METABOLIC ACIDOSIS [None]
